FAERS Safety Report 6981418-X (Version None)
Quarter: 2010Q3

REPORT INFORMATION
  Report Type: 
  Country: None (occurrence: None)
  Receive Date: 20100914
  Receipt Date: 20100831
  Transmission Date: 20110219
  Serious: Yes (Hospitalization)
  Sender: FDA-Public Use
  Company Number: US-MYLANLABS-2010S1015902

PATIENT
  Age: 14 Year
  Sex: Male

DRUGS (4)
  1. MINOCYCLINE HCL [Suspect]
     Indication: ACNE
     Route: 065
  2. ADDERALL XR 10 [Concomitant]
     Indication: MENTAL DISORDER
     Route: 065
  3. QUETIAPINE [Concomitant]
     Indication: MENTAL DISORDER
     Route: 065
  4. LITHIUM CARBONATE [Concomitant]
     Indication: MENTAL DISORDER
     Route: 065

REACTIONS (3)
  - AUTOIMMUNE THYROIDITIS [None]
  - DRUG RASH WITH EOSINOPHILIA AND SYSTEMIC SYMPTOMS [None]
  - HYPONATRAEMIA [None]
